FAERS Safety Report 6792383-2 (Version None)
Quarter: 2010Q2

REPORT INFORMATION
  Report Type: 
  Country: None (occurrence: None)
  Receive Date: 20100624
  Receipt Date: 20080808
  Transmission Date: 20101027
  Serious: No
  Sender: FDA-Public Use
  Company Number: US-PFIZER INC-2008064381

PATIENT
  Sex: Male

DRUGS (2)
  1. GEODON [Suspect]
  2. THORAZINE [Suspect]

REACTIONS (2)
  - CONTRAINDICATION TO MEDICAL TREATMENT [None]
  - DRUG INEFFECTIVE [None]
